FAERS Safety Report 10041409 (Version 1)
Quarter: 2014Q1

REPORT INFORMATION
  Report Type: Spontaneous
  Country: US (occurrence: None)
  Receive Date: 20140326
  Receipt Date: 20140326
  Transmission Date: 20141002
  Serious: Yes (Other)
  Sender: FDA-Public Use
  Company Number: None

PATIENT
  Age: 42 Year
  Sex: Female

DRUGS (1)
  1. TECFIDERA 120 MG BIOGEN [Suspect]
     Indication: MULTIPLE SCLEROSIS
     Dosage: 1 CAPSULE, BID, ORAL
     Route: 048

REACTIONS (4)
  - Flushing [None]
  - Rash [None]
  - Urticaria [None]
  - Swelling face [None]
